FAERS Safety Report 17837669 (Version 1)
Quarter: 2020Q2

REPORT INFORMATION
  Report Type: Spontaneous
  Country: TR (occurrence: TR)
  Receive Date: 20200528
  Receipt Date: 20200528
  Transmission Date: 20200714
  Serious: Yes (Hospitalization, Other)
  Sender: FDA-Public Use
  Company Number: TR-JNJFOC-20200529842

PATIENT
  Age: 80 Year
  Sex: Female

DRUGS (4)
  1. METOPROLOL. [Concomitant]
     Active Substance: METOPROLOL
  2. AMPICILLIN [Concomitant]
     Active Substance: AMPICILLIN
     Indication: UPPER RESPIRATORY TRACT INFECTION
  3. RIVAROXABAN [Suspect]
     Active Substance: RIVAROXABAN
     Indication: ATRIAL FIBRILLATION
     Dosage: UNK UNK, QD
     Route: 048
  4. AMIODARONE [Interacting]
     Active Substance: AMIODARONE
     Indication: PRODUCT USED FOR UNKNOWN INDICATION
     Route: 065

REACTIONS (6)
  - Blood creatinine increased [Recovering/Resolving]
  - Urine output decreased [Recovering/Resolving]
  - Diarrhoea [Recovered/Resolved]
  - Malaise [Recovered/Resolved]
  - Drug interaction [Unknown]
  - Blood urea increased [Recovering/Resolving]
